FAERS Safety Report 25104935 (Version 1)
Quarter: 2025Q1

REPORT INFORMATION
  Report Type: Spontaneous
  Country: CH (occurrence: CH)
  Receive Date: 20250321
  Receipt Date: 20250321
  Transmission Date: 20250409
  Serious: Yes (Other)
  Sender: ELI LILLY AND COMPANY
  Company Number: None

PATIENT
  Age: 19 Year
  Sex: Female

DRUGS (10)
  1. CYMBALTA [Suspect]
     Active Substance: DULOXETINE HYDROCHLORIDE
     Indication: Product used for unknown indication
     Dosage: 120 MG, DAILY
     Route: 065
     Dates: start: 202110
  2. LITHIUM SULFATE [Suspect]
     Active Substance: LITHIUM SULFATE
     Indication: Product used for unknown indication
     Dosage: 330 MG, BID
     Route: 065
     Dates: start: 202302
  3. LITHIUM SULFATE [Suspect]
     Active Substance: LITHIUM SULFATE
     Dosage: 660 MG, BID
     Route: 065
     Dates: start: 2023, end: 202412
  4. LITHIUM SULFATE [Suspect]
     Active Substance: LITHIUM SULFATE
     Dosage: 330 MG, DAILY
     Route: 065
     Dates: start: 202501, end: 202501
  5. LITHIUM SULFATE [Suspect]
     Active Substance: LITHIUM SULFATE
     Dosage: 660 MG, DAILY
     Route: 065
     Dates: start: 202501, end: 202501
  6. LITHIUM SULFATE [Suspect]
     Active Substance: LITHIUM SULFATE
     Dosage: 330 MG, BID
     Route: 065
     Dates: start: 202502
  7. RISPERDAL [Suspect]
     Active Substance: RISPERIDONE
     Indication: Product used for unknown indication
     Dosage: 0.5 MG, DAILY
     Route: 065
     Dates: start: 202110
  8. RISPERDAL [Suspect]
     Active Substance: RISPERIDONE
     Dosage: 3 MG, DAILY
     Route: 065
     Dates: start: 202110, end: 2024
  9. RISPERDAL [Suspect]
     Active Substance: RISPERIDONE
     Dosage: UNK UNK, DAILY
     Route: 065
     Dates: start: 202410, end: 202502
  10. RISPERDAL [Suspect]
     Active Substance: RISPERIDONE
     Dosage: 0.5 MG, DAILY
     Route: 065
     Dates: start: 202502

REACTIONS (9)
  - Acne [Recovering/Resolving]
  - Hypothyroidism [Not Recovered/Not Resolved]
  - Breast discomfort [Not Recovered/Not Resolved]
  - Constipation [Not Recovered/Not Resolved]
  - Abdominal pain [Not Recovered/Not Resolved]
  - Weight increased [Recovered/Resolved]
  - Heavy menstrual bleeding [Not Recovered/Not Resolved]
  - Hyperprolactinaemia [Unknown]
  - Headache [Not Recovered/Not Resolved]

NARRATIVE: CASE EVENT DATE: 20230101
